FAERS Safety Report 9821334 (Version 2)
Quarter: 2014Q1

REPORT INFORMATION
  Report Type: Spontaneous
  Country: US (occurrence: US)
  Receive Date: 20140116
  Receipt Date: 20140116
  Transmission Date: 20141002
  Serious: Yes (Other)
  Sender: FDA-Public Use
  Company Number: US-PFIZER INC-2014003692

PATIENT
  Sex: 0

DRUGS (1)
  1. VANCOMYCIN HCL [Suspect]
     Dosage: UNK

REACTIONS (4)
  - Renal failure acute [Unknown]
  - Renal tubular necrosis [Unknown]
  - Nephropathy toxic [Unknown]
  - Product quality issue [Unknown]
